FAERS Safety Report 7769357-8 (Version None)
Quarter: 2011Q3

REPORT INFORMATION
  Report Type: 
  Country: None (occurrence: None)
  Receive Date: 20110922
  Receipt Date: 20110920
  Transmission Date: 20111222
  Serious: Yes (Death)
  Sender: FDA-Public Use
  Company Number: ES-ROCHE-802745

PATIENT
  Sex: Male

DRUGS (5)
  1. EFUDEX [Suspect]
     Dosage: FREQUENCY : DAY 1,2,15,16 . FORM : INFUSION
     Route: 042
     Dates: start: 20090511, end: 20090701
  2. BEVACIZUMAB [Suspect]
     Indication: COLORECTAL CANCER
     Dosage: FREQUENCY : DAY1 AND DAY 15 , FORM : INFUSION
     Route: 042
     Dates: start: 20090511, end: 20090630
  3. OXALIPLATIN [Suspect]
     Indication: COLORECTAL CANCER
     Dosage: FREQUENCY : DAY 1 AND DAY 15 , FORM : INFUSION, LAST DOSE PRIOR TO SAE: 30 JUNE 2009
     Route: 042
     Dates: start: 20090511, end: 20090630
  4. LEUCOVORIN CALCIUM [Suspect]
     Indication: COLORECTAL CANCER
     Dosage: FREQUENCY : DAY 1,2,15,16 . FORM : INFUSION. LAST DOSE PRIOR TO SAE : 01 JULY 2009
     Route: 042
     Dates: start: 20090511, end: 20090701
  5. EFUDEX [Suspect]
     Indication: COLORECTAL CANCER
     Dosage: FREQUENCY : DAY 1,2,15,16 , FORM : BOLUS. LAST DOSE PRIOR TO SAE 01 JULY 2009
     Route: 042
     Dates: start: 20090511, end: 20090701

REACTIONS (1)
  - DEATH [None]
